FAERS Safety Report 6204217-5 (Version None)
Quarter: 2009Q2

REPORT INFORMATION
  Report Type: 
  Country: None (occurrence: None)
  Receive Date: 20090526
  Receipt Date: 20090526
  Transmission Date: 20091009
  Serious: Yes (Life-Threatening, Other)
  Sender: FDA-Public Use
  Company Number: None

PATIENT
  Age: 43 Year
  Sex: Female
  Weight: 68.0396 kg

DRUGS (2)
  1. LEXAPRO [Suspect]
     Indication: PANIC ATTACK
     Dosage: 20MG 1 X DAY PO
     Route: 048
     Dates: start: 20090413, end: 20090522
  2. LEXAPRO [Suspect]
     Dosage: 10 MG 1 X DAY PO
     Route: 048
     Dates: start: 20090522, end: 20090522

REACTIONS (3)
  - ACTIVITIES OF DAILY LIVING IMPAIRED [None]
  - COMMUNICATION DISORDER [None]
  - SPEECH DISORDER [None]
